FAERS Safety Report 9337026 (Version 1)
Quarter: 2013Q2

REPORT INFORMATION
  Report Type: Spontaneous
  Country: US (occurrence: US)
  Receive Date: 20130607
  Receipt Date: 20130607
  Transmission Date: 20140414
  Serious: Yes (Hospitalization)
  Sender: FDA-Public Use
  Company Number: US-NOVOPROD-379421

PATIENT
  Sex: Female

DRUGS (1)
  1. LEVEMIR FLEXPEN [Suspect]
     Indication: PRODUCT USED FOR UNKNOWN INDICATION
     Dosage: UNK
     Route: 058
     Dates: start: 20130523

REACTIONS (3)
  - Blood pressure increased [Recovering/Resolving]
  - Drug ineffective [Recovering/Resolving]
  - Blood glucose increased [Recovering/Resolving]
